FAERS Safety Report 16472430 (Version 1)
Quarter: 2019Q2

REPORT INFORMATION
  Report Type: Report from Study
  Country: None (occurrence: FR)
  Receive Date: 20190625
  Receipt Date: 20190625
  Transmission Date: 20190711
  Serious: Yes (Other)
  Sender: FDA-Public Use
  Company Number: FR-ABBVIE-19K-056-2792074-00

PATIENT
  Age: 52 Year
  Sex: Male
  Weight: 60 kg

DRUGS (1)
  1. HUMIRA [Suspect]
     Active Substance: ADALIMUMAB
     Indication: CROHN^S DISEASE
     Dosage: WEEK 0?2 X 80 MG
     Route: 058
     Dates: start: 20190503, end: 20190503

REACTIONS (2)
  - Endocrine neoplasm [Recovering/Resolving]
  - Intestinal stenosis [Recovering/Resolving]
